FAERS Safety Report 5806532-3 (Version None)
Quarter: 2008Q3

REPORT INFORMATION
  Report Type: 
  Country: None (occurrence: None)
  Receive Date: 20080710
  Receipt Date: 20080707
  Transmission Date: 20090109
  Serious: Yes (Hospitalization)
  Sender: FDA-Public Use
  Company Number: US-BOEHRINGER INGELHEIM GMBH, GERMANY-2008-BP-10609BP

PATIENT
  Age: 71 Year
  Sex: Female

DRUGS (1)
  1. ATROVENT HFA [Suspect]

REACTIONS (1)
  - PNEUMONIA [None]
